FAERS Safety Report 7882584-4 (Version None)
Quarter: 2011Q4

REPORT INFORMATION
  Report Type: 
  Country: None (occurrence: None)
  Receive Date: 20111101
  Receipt Date: 20110616
  Transmission Date: 20120403
  Serious: No
  Sender: FDA-Public Use
  Company Number: US-AMGEN-USASP2011030926

PATIENT
  Age: 46 Year
  Sex: Male
  Weight: 95.238 kg

DRUGS (5)
  1. VENLAFAXINE [Concomitant]
     Dosage: 150 MG, UNK
  2. ENBREL [Suspect]
     Indication: PRODUCT USED FOR UNKNOWN INDICATION
     Dosage: 50 MG, QWK
  3. LAMICTAL [Concomitant]
     Dosage: 150 MG, UNK
  4. TRAZODONE HYDROCHLORIDE [Concomitant]
     Dosage: 50 MG, UNK
  5. VALIUM [Concomitant]
     Dosage: 5 MG, UNK

REACTIONS (3)
  - POOR QUALITY SLEEP [None]
  - GAIT DISTURBANCE [None]
  - BALANCE DISORDER [None]
